FAERS Safety Report 9728576 (Version 1)
Quarter: 2013Q4

REPORT INFORMATION
  Report Type: Spontaneous
  Country: FR (occurrence: None)
  Receive Date: 20131202
  Receipt Date: 20131202
  Transmission Date: 20140711
  Serious: Yes (Hospitalization)
  Sender: FDA-Public Use
  Company Number: SYM-2013-13390

PATIENT
  Age: 62 Year
  Sex: Male

DRUGS (2)
  1. FLAGYL (METRONIDAZOLE) (METRONIDAZOLE) [Suspect]
     Indication: DIVERTICULITIS
     Route: 048
     Dates: end: 20131107
  2. LEVOFLOXACIN [Suspect]
     Indication: DIVERTICULITIS
     Route: 048
     Dates: end: 20131106

REACTIONS (9)
  - Delirium [None]
  - Confusional state [None]
  - Hallucination, visual [None]
  - Blood creatinine increased [None]
  - International normalised ratio increased [None]
  - Blood glucose increased [None]
  - Nuclear magnetic resonance imaging abnormal [None]
  - Red blood cell abnormality [None]
  - Overdose [None]
